FAERS Safety Report 4701804-8 (Version None)
Quarter: 2005Q2

REPORT INFORMATION
  Report Type: 
  Country: None (occurrence: None)
  Receive Date: 20050627
  Receipt Date: 20050617
  Transmission Date: 20051028
  Serious: Yes (Death)
  Sender: FDA-Public Use
  Company Number: HQWYE215417JUL04

PATIENT
  Age: 55 Year
  Sex: Female
  Weight: 83.99 kg

DRUGS (4)
  1. PREMPRO [Suspect]
     Indication: MENOPAUSE
     Dosage: 0.625MG/2.5MG TABLET, ORAL
     Route: 048
     Dates: start: 19970101, end: 20020101
  2. ESTRACE [Suspect]
     Indication: MENOPAUSE
     Dosage: 2 MG TABLET, ORAL
     Route: 048
     Dates: start: 19950101, end: 19970101
  3. PREMARIN [Suspect]
     Indication: MENOPAUSE
     Dosage: 0.9MG TABLET, ORAL
     Route: 048
     Dates: start: 19910101, end: 19950101
  4. PROVERA [Suspect]
     Indication: MENOPAUSE
     Dosage: 10MG TABLET, ORAL
     Route: 048
     Dates: start: 19910101, end: 19970101

REACTIONS (1)
  - BREAST CANCER FEMALE [None]
